FAERS Safety Report 7983676-1 (Version None)
Quarter: 2011Q4

REPORT INFORMATION
  Report Type: 
  Country: None (occurrence: None)
  Receive Date: 20111215
  Receipt Date: 20111209
  Transmission Date: 20120403
  Serious: Yes (Other)
  Sender: FDA-Public Use
  Company Number: CA-ASTRAZENECA-2011SE51270

PATIENT
  Age: 77 Year
  Sex: Female

DRUGS (2)
  1. HYDROXYUREA [Concomitant]
     Indication: PLATELET COUNT INCREASED
  2. ARIMIDEX [Suspect]
     Indication: BREAST CANCER
     Route: 048

REACTIONS (6)
  - RETINAL SCAR [None]
  - CATARACT [None]
  - DRY SKIN [None]
  - VISION BLURRED [None]
  - ALOPECIA [None]
  - SKIN WRINKLING [None]
